FAERS Safety Report 8872941 (Version 1)
Quarter: 2012Q4

REPORT INFORMATION
  Report Type: Spontaneous
  Country: US (occurrence: None)
  Receive Date: 20121026
  Receipt Date: 20121026
  Transmission Date: 20130627
  Serious: No
  Sender: FDA-Public Use
  Company Number: None

PATIENT
  Age: 60 Year
  Sex: Male
  Weight: 92.7 kg

DRUGS (1)
  1. SERTRALINE [Suspect]
     Route: 048
     Dates: start: 20120710, end: 20120808

REACTIONS (1)
  - Angina pectoris [None]
